FAERS Safety Report 9367647 (Version 2)
Quarter: 2013Q4

REPORT INFORMATION
  Report Type: Spontaneous
  Country: US (occurrence: US)
  Receive Date: 20130625
  Receipt Date: 20131213
  Transmission Date: 20140711
  Serious: Yes (Hospitalization)
  Sender: FDA-Public Use
  Company Number: US-B.I. PHARMACEUTICALS,INC./RIDGEFIELD-2013-BI-17932BP

PATIENT
  Sex: Female
  Weight: 58.97 kg

DRUGS (16)
  1. PRADAXA [Suspect]
     Indication: ANTICOAGULANT THERAPY
     Dosage: 300 MG
     Dates: start: 20120417, end: 20120729
  2. PRADAXA [Suspect]
     Indication: ATRIAL FIBRILLATION
  3. SIMVASTATIN [Concomitant]
     Dosage: 20 MG
  4. FISH OIL [Concomitant]
  5. LISINOPRIL/HCTZ [Concomitant]
  6. TOPROL XL [Concomitant]
     Dosage: 25 MG
  7. GLIPIZIDE [Concomitant]
  8. METFORMIN [Concomitant]
  9. ASPIRIN [Concomitant]
     Dosage: 81 MG
  10. OMEPRAZOLE [Concomitant]
  11. PAXIL [Concomitant]
  12. VITAMIN D [Concomitant]
  13. VITAMIN C [Concomitant]
  14. TYLENOL [Concomitant]
  15. XANAX [Concomitant]
  16. AMBIEN [Concomitant]

REACTIONS (3)
  - Gastrointestinal haemorrhage [Unknown]
  - Anaemia [Unknown]
  - Acute prerenal failure [Unknown]
